FAERS Safety Report 13990514 (Version 3)
Quarter: 2017Q4

REPORT INFORMATION
  Report Type: Spontaneous
  Country: US (occurrence: US)
  Receive Date: 20170920
  Receipt Date: 20171130
  Transmission Date: 20180321
  Serious: Yes (Other)
  Sender: FDA-Public Use
  Company Number: US-PFIZER INC-2017399673

PATIENT
  Age: 75 Year
  Sex: Female

DRUGS (1)
  1. EPINEPHRINE. [Suspect]
     Active Substance: EPINEPHRINE
     Indication: CATARACT OPERATION
     Dosage: 0.8 ML EPI 1:1000 IN BSS BAG
     Route: 031
     Dates: start: 20170712, end: 20170712

REACTIONS (6)
  - Infection [Recovered/Resolved]
  - Post procedural infection [Unknown]
  - Pain [Recovering/Resolving]
  - Endophthalmitis [Recovering/Resolving]
  - Blindness [Recovering/Resolving]
  - Corneal oedema [Recovering/Resolving]

NARRATIVE: CASE EVENT DATE: 20170717
